FAERS Safety Report 8507960-8 (Version None)
Quarter: 2012Q3

REPORT INFORMATION
  Report Type: 
  Country: None (occurrence: None)
  Receive Date: 20120713
  Receipt Date: 20120705
  Transmission Date: 20120928
  Serious: No
  Sender: FDA-Public Use
  Company Number: US-BAYER-2012-067524

PATIENT
  Sex: Female

DRUGS (1)
  1. YASMIN [Suspect]
     Indication: ACNE
     Dosage: UNK
     Dates: start: 20060101, end: 20090101

REACTIONS (4)
  - HAIR TEXTURE ABNORMAL [None]
  - ALOPECIA [None]
  - STRESS [None]
  - TRICHORRHEXIS [None]
